FAERS Safety Report 16339793 (Version 2)
Quarter: 2019Q3

REPORT INFORMATION
  Report Type: Report from Study
  Country: US (occurrence: US)
  Receive Date: 20190521
  Receipt Date: 20190723
  Transmission Date: 20191004
  Serious: Yes (Death, Hospitalization)
  Sender: FDA-Public Use
  Company Number: US-ACTELION-A-US2017-153612

PATIENT
  Age: 65 Year
  Sex: Female
  Weight: 82.54 kg

DRUGS (3)
  1. ADCIRCA [Concomitant]
     Active Substance: TADALAFIL
  2. ORENITRAM [Suspect]
     Active Substance: TREPROSTINIL
     Indication: PRODUCT USED FOR UNKNOWN INDICATION
     Dosage: UNK
     Route: 065
     Dates: end: 20170501
  3. OPSUMIT [Suspect]
     Active Substance: MACITENTAN
     Indication: PULMONARY ARTERIAL HYPERTENSION
     Dosage: 10 MG, QD
     Route: 048
     Dates: start: 20140331

REACTIONS (18)
  - Diarrhoea [Unknown]
  - Pain in extremity [Unknown]
  - Hypothyroidism [Unknown]
  - Oxygen consumption increased [Unknown]
  - Cardiac failure congestive [Unknown]
  - Extra dose administered [Recovered/Resolved]
  - Thyroid function test abnormal [Unknown]
  - Hospitalisation [Recovered/Resolved]
  - Seasonal allergy [Unknown]
  - Fluid retention [Unknown]
  - Vomiting [Unknown]
  - Death [Fatal]
  - Swelling [Unknown]
  - Heart rate increased [Unknown]
  - Back pain [Unknown]
  - Nausea [Unknown]
  - Dizziness [Unknown]
  - Asthma [Unknown]

NARRATIVE: CASE EVENT DATE: 20171012
